FAERS Safety Report 7625499-9 (Version None)
Quarter: 2011Q3

REPORT INFORMATION
  Report Type: 
  Country: None (occurrence: None)
  Receive Date: 20110721
  Receipt Date: 20110711
  Transmission Date: 20111222
  Serious: Yes (Hospitalization, Other)
  Sender: FDA-Public Use
  Company Number: US-BAYER-201035558NA

PATIENT
  Age: 36 Year
  Sex: Female
  Weight: 155 kg

DRUGS (14)
  1. AZATHIOPRINE [Concomitant]
     Indication: CEREBRAL SARCOIDOSIS
     Dosage: 50 MG, UNK
     Dates: start: 20080101
  2. POTASSION [Concomitant]
     Dosage: UNK
     Dates: start: 20060101
  3. YAZ [Suspect]
     Indication: CONTRACEPTION
  4. YAZ [Suspect]
  5. PREDNISONE [Concomitant]
     Dosage: 60 MG, QD
  6. YAZ [Suspect]
     Indication: PREMENSTRUAL SYNDROME
  7. TYLENOL-500 [Concomitant]
     Dosage: UNK
     Dates: start: 20070101
  8. MYDOL [Concomitant]
     Dosage: UNK
     Dates: start: 20070101
  9. CEFDINIR [Concomitant]
  10. OMNICEF [Concomitant]
     Dosage: 300 MG, BID
     Route: 048
     Dates: start: 20080731
  11. YAZ [Suspect]
     Indication: PROPHYLAXIS
     Dosage: UNK UNK, UNK
     Route: 048
     Dates: start: 20071024, end: 20080802
  12. LASIX [Concomitant]
     Dosage: UNK
     Dates: start: 20060101
  13. PREDNISONE [Concomitant]
     Indication: OPTIC NEURITIS
     Dosage: 10 MG, QD
     Dates: start: 20080601
  14. MIGRAINE MEDICINE [Concomitant]
     Dosage: UNK
     Dates: start: 20070101

REACTIONS (3)
  - CHEST PAIN [None]
  - DYSPNOEA [None]
  - PULMONARY EMBOLISM [None]
